FAERS Safety Report 7203089-X (Version None)
Quarter: 2010Q4

REPORT INFORMATION
  Report Type: 
  Country: None (occurrence: None)
  Receive Date: 20101229
  Receipt Date: 20090608
  Transmission Date: 20110411
  Serious: Yes (Hospitalization)
  Sender: FDA-Public Use
  Company Number: IE-GENENTECH-311840

PATIENT
  Sex: Female

DRUGS (2)
  1. XOLAIR [Suspect]
     Indication: BRONCHOPULMONARY ASPERGILLOSIS ALLERGIC
     Dosage: 300 MG, Q2W
     Dates: start: 20090522
  2. XOLAIR [Suspect]
     Dosage: UNK
     Dates: start: 20090605

REACTIONS (2)
  - DEVICE ISSUE [None]
  - DEVICE RELATED INFECTION [None]
